FAERS Safety Report 5760205-4 (Version None)
Quarter: 2008Q2

REPORT INFORMATION
  Report Type: 
  Country: None (occurrence: None)
  Receive Date: 20080602
  Receipt Date: 20080529
  Transmission Date: 20081010
  Serious: Yes (Hospitalization)
  Sender: FDA-Public Use
  Company Number: 2008SP010098

PATIENT
  Age: 69 Year
  Sex: Male

DRUGS (8)
  1. TEMODAL [Suspect]
     Indication: GLIOBLASTOMA MULTIFORME
     Dosage: 350 MG, QD, PO
     Route: 048
     Dates: start: 20080110, end: 20080505
  2. TEMODAL [Suspect]
  3. DOXORUBICIN HCL [Suspect]
     Dosage: 80 MG QM, IV
     Route: 042
     Dates: start: 20080110, end: 20080501
  4. DOXORUBICIN HCL [Suspect]
  5. METFORMIN [Concomitant]
  6. DEXAMETHASONE TAB [Concomitant]
  7. PERINDOPRIL ERBUMINE [Concomitant]
  8. BACTRIM [Concomitant]

REACTIONS (6)
  - DEHYDRATION [None]
  - FATIGUE [None]
  - FLUID INTAKE REDUCED [None]
  - IMPAIRED WORK ABILITY [None]
  - MOBILITY DECREASED [None]
  - MUCOSAL INFLAMMATION [None]
